FAERS Safety Report 4307547-7 (Version None)
Quarter: 2004Q1

REPORT INFORMATION
  Report Type: 
  Country: None (occurrence: None)
  Receive Date: 20040226
  Receipt Date: 20040216
  Transmission Date: 20041129
  Serious: Yes (Hospitalization)
  Sender: FDA-Public Use
  Company Number: 2004010872

PATIENT
  Age: 75 Year
  Sex: Female

DRUGS (5)
  1. ATORVASTATIN CALCIUM [Suspect]
     Indication: DYSLIPIDAEMIA
     Dosage: 10 MG (EVERY OTHER DAY), ORAL
     Route: 048
     Dates: start: 19980601
  2. LORAZEPAM [Concomitant]
  3. FLUNARIZINE (FLUNARIZINE) [Concomitant]
  4. SERTRALINE HCL [Concomitant]
  5. OMEPRAZOLE [Concomitant]

REACTIONS (1)
  - BREAST NEOPLASM [None]
